FAERS Safety Report 4423469-5 (Version None)
Quarter: 2004Q3

REPORT INFORMATION
  Report Type: 
  Country: None (occurrence: None)
  Receive Date: 20040806
  Receipt Date: 20040727
  Transmission Date: 20050211
  Serious: No
  Sender: FDA-Public Use
  Company Number: 2004UW15893

PATIENT
  Sex: Female

DRUGS (3)
  1. ZOMIG [Suspect]
     Indication: MIGRAINE
     Dosage: 1 DF PO
     Route: 048
  2. ADVIL [Concomitant]
  3. TYLENOL W/ CODEINE [Concomitant]

REACTIONS (2)
  - DEAFNESS UNILATERAL [None]
  - SENSATION OF BLOCK IN EAR [None]
